FAERS Safety Report 8785194 (Version 1)
Quarter: 2012Q4

REPORT INFORMATION
  Report Type: Spontaneous
  Country: IT (occurrence: None)
  Receive Date: 20120831
  Receipt Date: 20120831
  Transmission Date: 20130627
  Serious: Yes (Hospitalization, Other)
  Sender: FDA-Public Use
  Company Number: INT_00110_2012

PATIENT
  Age: 70 Year
  Sex: Female

DRUGS (2)
  1. CEFTRIAXONE [Suspect]
     Indication: COUGH
     Route: 030
  2. CEFTRIAXONE [Suspect]
     Indication: PYREXIA
     Route: 030

REACTIONS (3)
  - Mitral valve incompetence [None]
  - Tricuspid valve incompetence [None]
  - Stress cardiomyopathy [None]
